FAERS Safety Report 8505688-1 (Version None)
Quarter: 2012Q3

REPORT INFORMATION
  Report Type: 
  Country: None (occurrence: None)
  Receive Date: 20120712
  Receipt Date: 20120705
  Transmission Date: 20120928
  Serious: Yes (Death)
  Sender: FDA-Public Use
  Company Number: BE-NOVOPROD-355487

PATIENT
  Sex: Female

DRUGS (3)
  1. ACTRAPID [Suspect]
     Indication: PRODUCT USED FOR UNKNOWN INDICATION
     Dosage: UNK
     Route: 065
  2. ACTRAPID [Suspect]
     Dosage: UNK
     Route: 065
  3. ACTRAPID [Suspect]
     Dosage: UNK
     Route: 065

REACTIONS (1)
  - COMPLETED SUICIDE [None]
